FAERS Safety Report 8230552-5 (Version None)
Quarter: 2012Q1

REPORT INFORMATION
  Report Type: 
  Country: None (occurrence: None)
  Receive Date: 20120323
  Receipt Date: 20120313
  Transmission Date: 20120608
  Serious: Yes (Hospitalization)
  Sender: FDA-Public Use
  Company Number: US-JNJFOC-20120205596

PATIENT
  Sex: Male
  Weight: 102.06 kg

DRUGS (10)
  1. ASPIRIN [Concomitant]
  2. ZAROXOLYN [Concomitant]
  3. ALDACTONE [Concomitant]
  4. LACTULOSE [Concomitant]
  5. FOLIC ACID [Concomitant]
  6. LASIX [Concomitant]
     Indication: DIURETIC THERAPY
  7. SPIRONOLACTONE [Concomitant]
  8. LIPITOR [Concomitant]
  9. STELARA [Suspect]
     Indication: PSORIASIS
     Route: 058
  10. STELARA [Suspect]
     Route: 058
     Dates: start: 20100108

REACTIONS (3)
  - WEIGHT DECREASED [None]
  - CARDIAC FAILURE CONGESTIVE [None]
  - HYPONATRAEMIA [None]
